FAERS Safety Report 15037674 (Version 1)
Quarter: 2018Q2

REPORT INFORMATION
  Report Type: Spontaneous
  Country: US (occurrence: US)
  Receive Date: 20180620
  Receipt Date: 20180620
  Transmission Date: 20180711
  Serious: No
  Sender: FDA-Public Use
  Company Number: US-ASTRAZENECA-2018SE80080

PATIENT
  Sex: Male

DRUGS (1)
  1. FASENRA [Suspect]
     Active Substance: BENRALIZUMAB
     Indication: ASTHMA
     Dosage: 30 MG/ML, 3 DOSES WERE EVERY 4 WEEKS, AND HIS 4TH FASENRA DOSE, WAS 8 WEEKS AFTER THE 3RD FASENRA...
     Route: 058

REACTIONS (2)
  - Asthma [Unknown]
  - Urticaria [Unknown]

NARRATIVE: CASE EVENT DATE: 20180614
